FAERS Safety Report 5466908-3 (Version None)
Quarter: 2007Q3

REPORT INFORMATION
  Report Type: 
  Country: None (occurrence: None)
  Receive Date: 20070925
  Receipt Date: 20070914
  Transmission Date: 20080115
  Serious: Yes (Hospitalization)
  Sender: FDA-Public Use
  Company Number: US-AMGEN-QUU242448

PATIENT
  Sex: Female
  Weight: 57.7 kg

DRUGS (10)
  1. ENBREL [Suspect]
     Indication: RHEUMATOID ARTHRITIS
     Route: 058
     Dates: start: 20070830
  2. HYDROCHLOROTHIAZIDE [Concomitant]
  3. SYNTHROID [Concomitant]
  4. MIACALCIN [Concomitant]
  5. COSOPT [Concomitant]
  6. ALPHAGAN [Concomitant]
  7. KLOR-CON [Concomitant]
  8. PRILOSEC [Concomitant]
  9. TRAVATAN [Concomitant]
  10. FOSAMAX [Concomitant]

REACTIONS (3)
  - ANXIETY [None]
  - CHEST PAIN [None]
  - PAIN IN EXTREMITY [None]
